FAERS Safety Report 19503998 (Version 3)
Quarter: 2024Q4

REPORT INFORMATION
  Report Type: Spontaneous
  Country: DE (occurrence: DE)
  Receive Date: 20210707
  Receipt Date: 20241030
  Transmission Date: 20250115
  Serious: Yes (Hospitalization, Other)
  Sender: MYLAN
  Company Number: DE-002147023-NVSC2020DE324014

PATIENT
  Sex: Female
  Weight: 100 kg

DRUGS (61)
  1. RANITIDINE [Suspect]
     Active Substance: RANITIDINE
     Indication: Product used for unknown indication
     Dosage: UNK UNK, TID (1/2 X 300MG )
     Route: 065
  2. RANITIDINE [Suspect]
     Active Substance: RANITIDINE
     Dosage: 300 MG, QD
     Route: 065
     Dates: start: 2015
  3. DULOXETINE [Suspect]
     Active Substance: DULOXETINE
     Indication: Fibromyalgia
     Dosage: 60 MG, QD (EVENING)
     Route: 065
     Dates: end: 201010
  4. DULOXETINE [Suspect]
     Active Substance: DULOXETINE
     Indication: Pain
  5. MIRTAZAPINE [Suspect]
     Active Substance: MIRTAZAPINE
     Indication: Product used for unknown indication
     Dosage: 15 MILLIGRAM
     Route: 065
  6. MIRTAZAPINE [Suspect]
     Active Substance: MIRTAZAPINE
     Dosage: 15 MG, QD(EVENING)
     Route: 065
  7. DOXEPIN [Suspect]
     Active Substance: DOXEPIN
     Indication: Product used for unknown indication
     Dosage: UNK
     Route: 065
  8. NALOXONE HYDROCHLORIDE\TILIDINE HYDROCHLORIDE [Suspect]
     Active Substance: NALOXONE HYDROCHLORIDE\TILIDINE HYDROCHLORIDE
     Indication: Pain
     Dosage: 4 MILLIGRAM, BID
     Route: 065
  9. RANITIDINE HYDROCHLORIDE [Suspect]
     Active Substance: RANITIDINE HYDROCHLORIDE
     Indication: Gastrooesophageal reflux disease
     Dosage: 300 MG
     Route: 065
     Dates: start: 201510, end: 201703
  10. RANITIDINE HYDROCHLORIDE [Suspect]
     Active Substance: RANITIDINE HYDROCHLORIDE
     Indication: Hiatus hernia
     Dosage: 300 MG
     Route: 065
     Dates: start: 201806
  11. RANITIDINE HYDROCHLORIDE [Suspect]
     Active Substance: RANITIDINE HYDROCHLORIDE
     Indication: Chronic gastritis
     Dosage: 300 MG
     Route: 065
     Dates: start: 1999, end: 202001
  12. RANITIDINE HYDROCHLORIDE [Suspect]
     Active Substance: RANITIDINE HYDROCHLORIDE
     Dosage: 300 MG
     Route: 065
     Dates: start: 201710, end: 201802
  13. FLUPIRTINE [Suspect]
     Active Substance: FLUPIRTINE
     Indication: Product used for unknown indication
     Dosage: UNK(1X DAILY)
     Route: 065
  14. NALOXONE HYDROCHLORIDE\TILIDINE HYDROCHLORIDE [Suspect]
     Active Substance: NALOXONE HYDROCHLORIDE\TILIDINE HYDROCHLORIDE
     Indication: Pain
     Dosage: 8 MILLIGRAM, QD, 4 MG, BID
     Route: 065
  15. BLACK COHOSH\HERBALS\HYPERICUM PERFORATUM [Concomitant]
     Active Substance: BLACK COHOSH\HERBALS\HYPERICUM PERFORATUM
     Indication: Product used for unknown indication
     Dosage: 2 DOSAGE FORM, QD
     Route: 065
  16. MAGNESIUM [Concomitant]
     Active Substance: MAGNESIUM
     Indication: Product used for unknown indication
     Dosage: 300 UNK, QD
     Route: 065
  17. ARCOXIA [Concomitant]
     Active Substance: ETORICOXIB
     Indication: Product used for unknown indication
     Dosage: 1X 90 (ONCE DAILY (IN MORNING))
     Route: 065
     Dates: start: 200903
  18. MEBEVERINE [Concomitant]
     Active Substance: MEBEVERINE
     Indication: Product used for unknown indication
     Dosage: 1 DF (3X DAILY)
     Route: 065
  19. PREGABALIN [Concomitant]
     Active Substance: PREGABALIN
     Indication: Product used for unknown indication
     Dosage: 8 MG
     Route: 065
  20. PREGABALIN [Concomitant]
     Active Substance: PREGABALIN
     Dosage: 4 MG
     Route: 065
  21. PREGABALIN [Concomitant]
     Active Substance: PREGABALIN
     Dosage: 50 MG, QD
     Route: 065
  22. OMEBETA [Concomitant]
     Indication: Product used for unknown indication
     Dosage: 20 MG, QD
     Route: 065
     Dates: end: 2010
  23. DICLOFENAC [Concomitant]
     Active Substance: DICLOFENAC
     Indication: Myosclerosis
     Dosage: 75 MG (AS NEEDED 1-2 PER WEEK, TWICE (MORNING,EVENING)
     Route: 065
  24. DICLOFENAC [Concomitant]
     Active Substance: DICLOFENAC
     Dosage: UNK
     Route: 030
     Dates: start: 19991005, end: 19991005
  25. DICLOFENAC [Concomitant]
     Active Substance: DICLOFENAC
     Indication: Product used for unknown indication
     Dosage: 75 MG, BID[AT ADMISSION TO HOSPITAL 13 OCT 2010]
     Route: 065
  26. Novalgin [Concomitant]
     Indication: Product used for unknown indication
     Dosage: UNK, (2 X 500, FOUR TIMES DAILY)
     Route: 065
     Dates: start: 201109, end: 201109
  27. CALCI D [Concomitant]
     Indication: Product used for unknown indication
     Dosage: 1 DF, QD
     Route: 065
  28. PANTOPRAZOLE SODIUM [Concomitant]
     Active Substance: PANTOPRAZOLE SODIUM
     Indication: Product used for unknown indication
     Dosage: 20 MG, QD (MORNING)
     Route: 065
     Dates: start: 2009
  29. PANTOPRAZOLE SODIUM [Concomitant]
     Active Substance: PANTOPRAZOLE SODIUM
     Dosage: 20 MG, QD
     Route: 065
     Dates: start: 2010
  30. AMITRIPTYLINE [Concomitant]
     Active Substance: AMITRIPTYLINE
     Indication: Product used for unknown indication
     Dosage: 0.25 X 100, QD [IN-PATIENT STAY IN NOV 2015]
     Route: 065
  31. RANITIDINE [Concomitant]
     Active Substance: RANITIDINE
     Indication: Product used for unknown indication
     Dosage: 300 MG
     Route: 065
     Dates: start: 201802, end: 201806
  32. Mydocalm [Concomitant]
     Indication: Product used for unknown indication
     Dosage: 1 DF, QD (NIGHT)
     Route: 065
  33. ACETYLCYSTEINE [Concomitant]
     Active Substance: ACETYLCYSTEINE
     Indication: Product used for unknown indication
     Dosage: ONCE DAILY (IN THE MORNING)
     Route: 065
     Dates: start: 200903
  34. BETAMETHASONE DIPROPIONATE\CLOTRIMAZOLE [Concomitant]
     Active Substance: BETAMETHASONE DIPROPIONATE\CLOTRIMAZOLE
     Indication: Product used for unknown indication
     Dosage: UNK
     Route: 065
  35. HERBALS\HOPS\VALERIAN [Concomitant]
     Active Substance: HERBALS\HOPS\VALERIAN
     Indication: Product used for unknown indication
     Dosage: UNK UNK, QD
     Route: 065
  36. ESOMEPRAZOLE [Concomitant]
     Active Substance: ESOMEPRAZOLE
     Indication: Product used for unknown indication
     Dosage: 20 MG, QD
     Route: 065
  37. DIAZEPAM [Concomitant]
     Active Substance: DIAZEPAM
     Indication: Product used for unknown indication
     Dosage: UNK
     Route: 065
  38. RANITIDINE HYDROCHLORIDE [Concomitant]
     Active Substance: RANITIDINE HYDROCHLORIDE
     Indication: Product used for unknown indication
     Dosage: 300 MG
     Route: 065
     Dates: start: 201703, end: 201710
  39. PANTOPRAZOLE [Concomitant]
     Active Substance: PANTOPRAZOLE
     Indication: Product used for unknown indication
     Dosage: 40 MG, QD
     Route: 065
  40. PANTOPRAZOLE [Concomitant]
     Active Substance: PANTOPRAZOLE
     Dosage: 40 MG, QD
     Route: 065
     Dates: start: 2010
  41. METAMIZOLE [Concomitant]
     Active Substance: METAMIZOLE
     Indication: Pain
     Dosage: 500 MG, QD
     Route: 065
  42. ANAFRANIL [Concomitant]
     Active Substance: CLOMIPRAMINE HYDROCHLORIDE
     Indication: Pain
     Dosage: UNK
     Route: 065
  43. TETRAZEPAM [Concomitant]
     Active Substance: TETRAZEPAM
     Indication: Product used for unknown indication
     Dosage: 1 DOSAGE FORM, QD
     Route: 065
  44. OMEPRAZOLE [Concomitant]
     Active Substance: OMEPRAZOLE
     Indication: Product used for unknown indication
     Dosage: 40 MG, QD
     Route: 065
     Dates: start: 2010
  45. MAPROTILINE [Concomitant]
     Active Substance: MAPROTILINE
     Indication: Pain
     Dosage: UNK
     Route: 065
  46. CELEBREX [Concomitant]
     Active Substance: CELECOXIB
     Indication: Product used for unknown indication
     Dosage: 600 MILLIGRAM, QD
     Route: 065
     Dates: start: 20101013
  47. CELEBREX [Concomitant]
     Active Substance: CELECOXIB
     Dosage: 600 MILLIGRAM, QD
     Route: 065
  48. RAMIPRIL [Concomitant]
     Active Substance: RAMIPRIL
     Indication: Product used for unknown indication
     Dosage: 2.5 MG, QD
     Route: 065
  49. TRAMADOL HYDROCHLORIDE [Concomitant]
     Active Substance: TRAMADOL HYDROCHLORIDE
     Indication: Product used for unknown indication
     Dosage: UNK, BID (PROLONGED FORMULATION)
     Route: 065
  50. TREVILOR RETARD [Concomitant]
     Active Substance: VENLAFAXINE HYDROCHLORIDE
     Indication: Product used for unknown indication
     Dosage: 1 DOSAGE FORM, QD, 37.5 UNK, QD
     Route: 065
  51. CEFUROXIME [Concomitant]
     Active Substance: CEFUROXIME
     Indication: Antibiotic prophylaxis
     Dosage: 4.5 MILLIGRAM, QD, (1.5 MG, TID)
     Route: 065
     Dates: start: 20110209, end: 20110709
  52. IBUPROFEN [Concomitant]
     Active Substance: IBUPROFEN
     Indication: Product used for unknown indication
     Dosage: 1600 MILLIGRAM, QD, (400 MG, QID FOUR TIMES DAILY)
     Route: 065
  53. IBUPROFEN [Concomitant]
     Active Substance: IBUPROFEN
     Dosage: 1800 MILLIGRAM, QD
     Route: 065
  54. CEFUROXIME [Concomitant]
     Active Substance: CEFUROXIME
     Indication: Paranasal sinus inflammation
     Dosage: UNK, (1 X 500, TWICE, MORNING, EVENING)
     Route: 065
     Dates: start: 201103
  55. TRIMIPRAMINE [Concomitant]
     Active Substance: TRIMIPRAMINE
     Indication: Pain
     Dosage: UNK (1-5 DROPS AT NIGHT)
     Route: 065
  56. HYDROMORPHONE HYDROCHLORIDE [Concomitant]
     Active Substance: HYDROMORPHONE HYDROCHLORIDE
     Indication: Pain
     Dosage: 8 MILLIGRAM, QD
     Route: 065
  57. HYDROMORPHONE HYDROCHLORIDE [Concomitant]
     Active Substance: HYDROMORPHONE HYDROCHLORIDE
     Indication: Fibromyalgia
  58. ENOXAPARIN SODIUM [Concomitant]
     Active Substance: ENOXAPARIN SODIUM
     Indication: Product used for unknown indication
     Dosage: 40 MILLIGRAM, QD
     Route: 065
     Dates: start: 201107
  59. Novamin [Concomitant]
     Indication: Arthralgia
     Dosage: UNK (1 X 40 DROPS, FOUR TIMES DAILY)
     Route: 065
  60. Valoron [Concomitant]
     Indication: Analgesic therapy
     Dosage: 1 X 100/8, TWICE, MORNING, EVENING
     Route: 058
  61. CERTOPARIN SODIUM [Concomitant]
     Active Substance: CERTOPARIN SODIUM
     Indication: Product used for unknown indication
     Dosage: UNK, QD, ONCE DAILY (EVENING)
     Route: 065
     Dates: start: 201109

REACTIONS (132)
  - Dizziness [Unknown]
  - Diverticulitis [Unknown]
  - Post procedural haemorrhage [Unknown]
  - Chronic gastritis [Unknown]
  - Bacterial infection [Unknown]
  - Lumbar vertebral fracture [Unknown]
  - Anaemia postoperative [Unknown]
  - Peripheral nerve lesion [Unknown]
  - Osteomyelitis [Unknown]
  - Cataract [Unknown]
  - Fall [Recovering/Resolving]
  - Pathological fracture [Unknown]
  - Hyperlipidaemia [Unknown]
  - Device related infection [Unknown]
  - Haematoma [Not Recovered/Not Resolved]
  - Multiple sclerosis [Unknown]
  - Cervical vertebral fracture [Unknown]
  - Junctional ectopic tachycardia [Unknown]
  - Arthralgia [Unknown]
  - Nasal turbinate hypertrophy [Unknown]
  - Hypoaesthesia [Unknown]
  - Cartilage injury [Unknown]
  - Weight increased [Unknown]
  - Suicidal ideation [Not Recovered/Not Resolved]
  - Facial paresis [Unknown]
  - Osteoarthritis [Unknown]
  - Sinobronchitis [Unknown]
  - Foramen magnum stenosis [Unknown]
  - Nasal septum deviation [Unknown]
  - Impaired healing [Recovering/Resolving]
  - Headache [Unknown]
  - Erythema [Unknown]
  - Nausea [Not Recovered/Not Resolved]
  - Radial nerve palsy [Unknown]
  - Chondropathy [Unknown]
  - Nail avulsion [Unknown]
  - Meniscus injury [Unknown]
  - Dysplasia [Unknown]
  - Asthenia [Unknown]
  - Crohn^s disease [Unknown]
  - Osteosclerosis [Unknown]
  - Patellofemoral pain syndrome [Unknown]
  - Rotator cuff syndrome [Recovered/Resolved]
  - Dyspepsia [Not Recovered/Not Resolved]
  - Humerus fracture [Recovering/Resolving]
  - Sciatica [Unknown]
  - Femur fracture [Unknown]
  - Arthropathy [Unknown]
  - Movement disorder [Recovering/Resolving]
  - Angina pectoris [Unknown]
  - Hot flush [Unknown]
  - Injury [Unknown]
  - Sensation of foreign body [Unknown]
  - Abdominal pain upper [Recovered/Resolved]
  - Alanine aminotransferase increased [Unknown]
  - Irritable bowel syndrome [Unknown]
  - Scar [Unknown]
  - Abdominal pain [Recovered/Resolved]
  - Micturition disorder [Unknown]
  - Full blood count abnormal [Recovered/Resolved]
  - Eczema [Unknown]
  - Muscle strain [Unknown]
  - Osteopenia [Unknown]
  - Pain in extremity [Recovering/Resolving]
  - Dyspnoea exertional [Unknown]
  - Intervertebral disc protrusion [Unknown]
  - Nocturia [Unknown]
  - Myalgia [Unknown]
  - Fatigue [Unknown]
  - Cyst [Unknown]
  - Flatulence [Unknown]
  - Tremor [Unknown]
  - Obstructive airways disorder [Unknown]
  - Spinal osteoarthritis [Unknown]
  - Personality disorder [Unknown]
  - Iliotibial band syndrome [Unknown]
  - Hypertension [Unknown]
  - Restrictive pulmonary disease [Unknown]
  - Abdominal discomfort [Not Recovered/Not Resolved]
  - Defaecation disorder [Unknown]
  - Malaise [Unknown]
  - Tendon disorder [Unknown]
  - Back pain [Unknown]
  - Bursitis [Unknown]
  - Anxiety disorder [Unknown]
  - Somatic symptom disorder [Unknown]
  - Lymphoedema [Unknown]
  - Dry mouth [Unknown]
  - Hyperhidrosis [Unknown]
  - Peripheral swelling [Recovered/Resolved]
  - Fibromyalgia [Unknown]
  - Stupor [Unknown]
  - Visual impairment [Not Recovered/Not Resolved]
  - Limb injury [Unknown]
  - Somnolence [Unknown]
  - Stress [Unknown]
  - Groin pain [Unknown]
  - Mental disorder [Unknown]
  - Migraine [Unknown]
  - Facet joint syndrome [Unknown]
  - Diarrhoea [Not Recovered/Not Resolved]
  - Atrial tachycardia [Unknown]
  - Depression [Unknown]
  - Tachycardia [Unknown]
  - Osteoporosis postmenopausal [Unknown]
  - Constipation [Not Recovered/Not Resolved]
  - Obesity [Unknown]
  - Tension headache [Unknown]
  - Joint stiffness [Unknown]
  - Supraventricular tachycardia [Unknown]
  - Bone density decreased [Unknown]
  - Vomiting [Unknown]
  - Gastritis [Unknown]
  - Gastrointestinal infection [Unknown]
  - Vertebral lesion [Unknown]
  - Uterine leiomyoma [Unknown]
  - Diastolic dysfunction [Unknown]
  - Dysaesthesia [Unknown]
  - Vitamin D deficiency [Recovering/Resolving]
  - Myofascial pain syndrome [Unknown]
  - Pain [Unknown]
  - Joint effusion [Unknown]
  - Sleep disorder [Unknown]
  - Gait disturbance [Unknown]
  - Gastrointestinal motility disorder [Unknown]
  - Disturbance in attention [Unknown]
  - Hypersensitivity [Unknown]
  - Blood iron decreased [Recovered/Resolved]
  - Paranasal sinus inflammation [Unknown]
  - Memory impairment [Unknown]
  - Gastroenteritis [Unknown]
  - Ligament sprain [Unknown]

NARRATIVE: CASE EVENT DATE: 19990101
